FAERS Safety Report 8080592-4 (Version None)
Quarter: 2012Q1

REPORT INFORMATION
  Report Type: 
  Country: None (occurrence: None)
  Receive Date: 20120130
  Receipt Date: 20120121
  Transmission Date: 20120608
  Serious: Yes (Other)
  Sender: FDA-Public Use
  Company Number: US-PFIZER INC-2012017626

PATIENT
  Sex: Male

DRUGS (3)
  1. OXYCODONE HCL [Suspect]
     Indication: ARTHRALGIA
     Dosage: 5 MG, AS NEEDED
  2. CELEBREX [Suspect]
     Indication: ARTHRALGIA
     Dosage: 200 MG, DAILY
     Route: 048
  3. CELEBREX [Suspect]
     Indication: ARTHRITIS

REACTIONS (2)
  - COLITIS ULCERATIVE [None]
  - GASTRIC HAEMORRHAGE [None]
